FAERS Safety Report 5465672-1 (Version None)
Quarter: 2007Q3

REPORT INFORMATION
  Report Type: 
  Country: None (occurrence: None)
  Receive Date: 20070924
  Receipt Date: 20070912
  Transmission Date: 20080115
  Serious: Yes (Other)
  Sender: FDA-Public Use
  Company Number: HN-ROCHE-518694

PATIENT
  Age: 56 Year
  Sex: Female

DRUGS (1)
  1. BONIVA [Suspect]
     Indication: OSTEOPOROSIS
     Dosage: DOSE REGIMEN: I TABLET PER MONTH.
     Route: 048
     Dates: start: 20070613

REACTIONS (1)
  - BREAST CYST [None]
